FAERS Safety Report 26203382 (Version 1)
Quarter: 2025Q4

REPORT INFORMATION
  Report Type: Spontaneous
  Country: CA (occurrence: None)
  Receive Date: 20251223
  Receipt Date: 20251223
  Transmission Date: 20260118
  Serious: Yes (Disabling, Other)
  Sender: FDA-CTU
  Company Number: None

PATIENT
  Age: 32 Year
  Sex: Female

DRUGS (1)
  1. COSMETICS [Suspect]
     Active Substance: COSMETICS
     Indication: Skin cosmetic procedure
     Dosage: DAILY TOPICAL
     Route: 061
     Dates: start: 20250319, end: 20250531

REACTIONS (2)
  - Facial spasm [None]
  - Headache [None]

NARRATIVE: CASE EVENT DATE: 20250601
